FAERS Safety Report 5612945-5 (Version None)
Quarter: 2008Q1

REPORT INFORMATION
  Report Type: 
  Country: None (occurrence: None)
  Receive Date: 20080204
  Receipt Date: 20080125
  Transmission Date: 20080703
  Serious: Yes (Other)
  Sender: FDA-Public Use
  Company Number: US-PFIZER INC-2008008443

PATIENT
  Sex: Male
  Weight: 78.636 kg

DRUGS (7)
  1. LIPITOR [Suspect]
     Indication: BLOOD CHOLESTEROL INCREASED
  2. VYTORIN [Suspect]
     Indication: BLOOD CHOLESTEROL INCREASED
  3. ASPIRIN [Concomitant]
  4. COLCHICINE [Concomitant]
  5. METOPROLOL TARTRATE [Concomitant]
  6. ASCORBIC ACID [Concomitant]
  7. VITAMIN B [Concomitant]

REACTIONS (4)
  - AORTIC VALVE REPLACEMENT [None]
  - BLOOD CHOLESTEROL ABNORMAL [None]
  - MALAISE [None]
  - MUSCLE SPASMS [None]
